FAERS Safety Report 9638292 (Version 2)
Quarter: 2014Q1

REPORT INFORMATION
  Report Type: Report from Study
  Country: US (occurrence: US)
  Receive Date: 20131022
  Receipt Date: 20140130
  Transmission Date: 20141002
  Serious: Yes (Hospitalization, Other)
  Sender: FDA-Public Use
  Company Number: US-ABBVIE-13P-163-1158310-00

PATIENT
  Age: 65 Year
  Sex: Male

DRUGS (10)
  1. HUMIRA [Suspect]
     Indication: RHEUMATOID ARTHRITIS
     Dates: start: 20130821
  2. HUMIRA [Suspect]
     Dates: start: 20131225
  3. PROTONIX [Concomitant]
     Indication: GASTROOESOPHAGEAL REFLUX DISEASE
  4. CARVEDILOL [Concomitant]
     Indication: HYPERTENSION
  5. PIOGLITAZONE [Concomitant]
     Indication: DIABETES MELLITUS
  6. FUROSEMIDE [Concomitant]
     Indication: PRODUCT USED FOR UNKNOWN INDICATION
  7. AMLOPIDINE [Concomitant]
     Indication: HYPERTENSION
  8. LIPITOR [Concomitant]
     Indication: BLOOD CHOLESTEROL INCREASED
  9. GLYBURIDE [Concomitant]
     Indication: DIABETES MELLITUS
  10. LEFLUNOMIDE [Concomitant]
     Indication: ARTHRITIS

REACTIONS (8)
  - Device defective [Not Recovered/Not Resolved]
  - Road traffic accident [Not Recovered/Not Resolved]
  - Chest pain [Recovered/Resolved]
  - Hypermobility syndrome [Unknown]
  - Chest pain [Recovered/Resolved]
  - Back pain [Unknown]
  - Hypoaesthesia [Unknown]
  - Injection site bruising [Not Recovered/Not Resolved]
